FAERS Safety Report 13363436 (Version 1)
Quarter: 2017Q1

REPORT INFORMATION
  Report Type: Spontaneous
  Country: JP (occurrence: JP)
  Receive Date: 20170323
  Receipt Date: 20170323
  Transmission Date: 20170429
  Serious: Yes (Life-Threatening, Hospitalization)
  Sender: FDA-Public Use
  Company Number: JP-BAYER-2016-018023

PATIENT
  Age: 74 Year
  Sex: Female
  Weight: 60 kg

DRUGS (7)
  1. ALFAROL [Concomitant]
     Active Substance: ALFACALCIDOL
     Indication: HYPOCALCAEMIA
     Dosage: DAILY DOSE 1 ?G
     Route: 048
     Dates: start: 20151127
  2. LEVOTHYROXINE SODIUM. [Concomitant]
     Active Substance: LEVOTHYROXINE SODIUM
     Indication: PAPILLARY THYROID CANCER
     Dosage: DAILY DOSE 25 ?G
     Route: 048
     Dates: start: 20151125
  3. NEXAVAR [Suspect]
     Active Substance: SORAFENIB
     Indication: PAPILLARY THYROID CANCER
     Dosage: 400 MG, BID
     Route: 048
     Dates: start: 20151125, end: 20151204
  4. HIRUDOID [Concomitant]
     Active Substance: GLYCOSAMINOGLYCANS
     Indication: DRUG TOXICITY PROPHYLAXIS
     Dosage: UNK
     Route: 061
     Dates: start: 20151202
  5. DENOSUMAB [Concomitant]
     Active Substance: DENOSUMAB
     Indication: METASTASES TO BONE
     Dosage: DAILY DOSE 120 MG
     Route: 058
     Dates: start: 20151126
  6. PYDOXAL [Concomitant]
     Active Substance: PYRIDOXAL
     Indication: DRUG TOXICITY PROPHYLAXIS
     Dosage: DAILY DOSE 30 MG
     Route: 048
     Dates: start: 20151202, end: 20151204
  7. LEVOTHYROXINE SODIUM. [Concomitant]
     Active Substance: LEVOTHYROXINE SODIUM
     Indication: PAPILLARY THYROID CANCER
     Dosage: DAILY DOSE 150 ?G
     Route: 048
     Dates: start: 20151125

REACTIONS (3)
  - Malaise [Recovered/Resolved]
  - Erythema multiforme [Recovered/Resolved]
  - Pyrexia [Recovered/Resolved]

NARRATIVE: CASE EVENT DATE: 20151204
